FAERS Safety Report 15080515 (Version 2)
Quarter: 2018Q3

REPORT INFORMATION
  Report Type: Spontaneous
  Country: DE (occurrence: DE)
  Receive Date: 20180628
  Receipt Date: 20180820
  Transmission Date: 20181010
  Serious: Yes (Death, Life-Threatening, Hospitalization)
  Sender: FDA-Public Use
  Company Number: DE-SUN PHARMACEUTICAL INDUSTRIES LTD-2018RR-176815

PATIENT
  Age: 50 Year
  Sex: Female
  Weight: 66 kg

DRUGS (15)
  1. LETROZOLE. [Suspect]
     Active Substance: LETROZOLE
     Indication: HER-2 POSITIVE BREAST CANCER
     Dosage: 2.5 MG, UNK
     Route: 065
     Dates: end: 20170818
  2. LETROZOLE. [Suspect]
     Active Substance: LETROZOLE
     Dosage: LAST DOSE PRIOR TO SAE ON 04/NOV/2016
     Route: 065
     Dates: start: 201405
  3. ATORVASTATIN [Concomitant]
     Active Substance: ATORVASTATIN
     Dosage: 20 MG, DAILY
     Route: 048
  4. ATORVASTATIN [Concomitant]
     Active Substance: ATORVASTATIN
     Indication: HYPERCHOLESTEROLAEMIA
     Dosage: UNK
     Route: 065
     Dates: end: 20170827
  5. PERTUZUMAB. [Suspect]
     Active Substance: PERTUZUMAB
     Indication: BREAST CANCER
     Dosage: UNK
  6. CLOPIDOGREL [Concomitant]
     Active Substance: CLOPIDOGREL BISULFATE
     Indication: PRODUCT USED FOR UNKNOWN INDICATION
     Dosage: UNK
     Route: 065
     Dates: start: 20170621, end: 20170827
  7. PERTUZUMAB. [Suspect]
     Active Substance: PERTUZUMAB
     Indication: HER-2 POSITIVE BREAST CANCER
     Dosage: 420 MG, 21 DAYS
     Route: 042
     Dates: start: 20161108, end: 20170705
  8. DOCETAXEL. [Suspect]
     Active Substance: DOCETAXEL
     Indication: HER-2 POSITIVE BREAST CANCER
     Dosage: 60?75 MG/M2
     Route: 042
     Dates: start: 20161108
  9. TRASTUZUMAB. [Suspect]
     Active Substance: TRASTUZUMAB
     Dosage: 6 MG/KG, 21 DAYS
     Route: 042
     Dates: start: 20140108
  10. KEPPRA [Concomitant]
     Active Substance: LEVETIRACETAM
     Dosage: UNK
     Route: 065
     Dates: end: 20170827
  11. PANTOPRAZOL [Concomitant]
     Active Substance: PANTOPRAZOLE SODIUM
     Indication: PRODUCT USED FOR UNKNOWN INDICATION
     Dosage: LAST DOSE ON 06/JAN/2017
     Route: 065
     Dates: start: 20170621, end: 20170827
  12. KEPPRA [Concomitant]
     Active Substance: LEVETIRACETAM
     Indication: EPILEPSY
     Dosage: LAST DOSE ON 06/JAN/2017
     Route: 048
     Dates: start: 2006
  13. ZOMETA [Suspect]
     Active Substance: ZOLEDRONIC ACID
     Indication: PRODUCT USED FOR UNKNOWN INDICATION
     Dosage: 4 MG, 28 DAYS
     Route: 065
     Dates: start: 20170302, end: 20170719
  14. TRASTUZUMAB. [Suspect]
     Active Substance: TRASTUZUMAB
     Indication: HER-2 POSITIVE BREAST CANCER
     Dosage: 6 MG/KG, 21 DAYS
     Route: 042
     Dates: start: 20161108, end: 20170705
  15. ASS LIGHT 100 [Concomitant]
     Indication: CEREBROVASCULAR ACCIDENT
     Dosage: LAST DOSE ON 06/JAN/2017
     Route: 065

REACTIONS (9)
  - Dysuria [Not Recovered/Not Resolved]
  - Cough [Not Recovered/Not Resolved]
  - Mucosal inflammation [Recovered/Resolved]
  - Dysgeusia [Recovered/Resolved]
  - Febrile neutropenia [Not Recovered/Not Resolved]
  - Neutropenia [Recovered/Resolved]
  - Vertigo [Recovered/Resolved]
  - Diarrhoea [Not Recovered/Not Resolved]
  - Epistaxis [Recovered/Resolved]

NARRATIVE: CASE EVENT DATE: 20161115
